FAERS Safety Report 9449546 (Version 3)
Quarter: 2013Q3

REPORT INFORMATION
  Report Type: Spontaneous
  Country: PH (occurrence: PH)
  Receive Date: 20130809
  Receipt Date: 20130826
  Transmission Date: 20140515
  Serious: Yes (Hospitalization)
  Sender: FDA-Public Use
  Company Number: PH-009507513-1308PHL002759

PATIENT
  Age: 59 Year
  Sex: Male

DRUGS (3)
  1. COZAAR [Suspect]
     Indication: BLOOD PRESSURE INCREASED
     Dosage: 50 MG, BID
     Route: 048
     Dates: start: 2005
  2. DILZEM [Concomitant]
     Indication: BLOOD PRESSURE
     Dosage: UNK, QD
     Route: 048
     Dates: start: 2012, end: 2013
  3. DILZEM [Concomitant]
     Dosage: UNK, BID
     Route: 048
     Dates: start: 2013

REACTIONS (5)
  - Transient ischaemic attack [Recovered/Resolved]
  - Blood pressure inadequately controlled [Recovered/Resolved]
  - Blood sodium decreased [Unknown]
  - Drug ineffective [Unknown]
  - Product quality issue [Unknown]
